FAERS Safety Report 5102480-5 (Version None)
Quarter: 2006Q3

REPORT INFORMATION
  Report Type: 
  Country: None (occurrence: None)
  Receive Date: 20060907
  Receipt Date: 20060825
  Transmission Date: 20061208
  Serious: Yes (Death)
  Sender: FDA-Public Use
  Company Number: 14694

PATIENT
  Age: 22 Year
  Sex: Female

DRUGS (3)
  1. HYDROMORPHONE HCL [Suspect]
  2. MORPHINE [Concomitant]
  3. DIAZEPAM [Concomitant]

REACTIONS (4)
  - DRUG TOXICITY [None]
  - HAEMORRHAGE SUBCUTANEOUS [None]
  - PULMONARY OEDEMA [None]
  - PUNCTURE SITE HAEMORRHAGE [None]
